FAERS Safety Report 4467916-1 (Version None)
Quarter: 2004Q4

REPORT INFORMATION
  Report Type: 
  Country: None (occurrence: None)
  Receive Date: 20041004
  Receipt Date: 20040916
  Transmission Date: 20050328
  Serious: Yes (Hospitalization)
  Sender: FDA-Public Use
  Company Number: DSA_24999_2004

PATIENT
  Sex: Male

DRUGS (3)
  1. HERBESSER R [Suspect]
     Indication: PRINZMETAL ANGINA
     Dates: start: 20040301, end: 20040906
  2. PENTASA [Suspect]
     Indication: COLITIS ULCERATIVE
  3. STEROID PREPARATION [Concomitant]

REACTIONS (3)
  - BODY TEMPERATURE INCREASED [None]
  - C-REACTIVE PROTEIN INCREASED [None]
  - RASH ERYTHEMATOUS [None]
